FAERS Safety Report 10953384 (Version 1)
Quarter: 2015Q1

REPORT INFORMATION
  Report Type: Spontaneous
  Country: US (occurrence: None)
  Receive Date: 20150226
  Receipt Date: 20150226
  Transmission Date: 20150721
  Serious: Yes (Hospitalization)
  Sender: FDA-Public Use
  Company Number: TAP2004Q00326

PATIENT
  Age: 78 Year
  Sex: Male
  Weight: 65.77 kg

DRUGS (2)
  1. ASPIRIN (ACETYLSALICYLIC ACID) [Concomitant]
     Active Substance: ASPIRIN
  2. PREVPAC [Suspect]
     Active Substance: AMOXICILLIN\CLARITHROMYCIN\LANSOPRAZOLE
     Indication: HELICOBACTER INFECTION
     Route: 048
     Dates: start: 20040203, end: 20040204

REACTIONS (2)
  - Somnolence [None]
  - Sedation [None]

NARRATIVE: CASE EVENT DATE: 20040203
